FAERS Safety Report 14159155 (Version 1)
Quarter: 2017Q4

REPORT INFORMATION
  Report Type: Spontaneous
  Country: US (occurrence: US)
  Receive Date: 20171103
  Receipt Date: 20171103
  Transmission Date: 20180321
  Serious: Yes (Other)
  Sender: FDA-Public Use
  Company Number: US-FRESENIUS KABI-FK201709255

PATIENT
  Age: 61 Year
  Sex: Male

DRUGS (10)
  1. CARMUSTINE [Suspect]
     Active Substance: CARMUSTINE
     Indication: HODGKIN^S DISEASE
     Route: 065
  2. MELPHALAN. [Suspect]
     Active Substance: MELPHALAN
     Indication: HODGKIN^S DISEASE
     Route: 065
  3. DACARBAZINE (MANUFACTURER UNKNOWN) [Suspect]
     Active Substance: DACARBAZINE
     Indication: HODGKIN^S DISEASE
     Route: 065
  4. ETOPOSIDE (MANUFACTURER UNKNOWN) [Suspect]
     Active Substance: ETOPOSIDE
     Indication: HODGKIN^S DISEASE
     Route: 065
  5. CARBOPLATIN (MANUFACTURER UNKNOWN) [Suspect]
     Active Substance: CARBOPLATIN
     Indication: HODGKIN^S DISEASE
     Route: 065
  6. CYTARABINE (MANUFACTURER UNKNOWN) [Suspect]
     Active Substance: CYTARABINE
     Indication: HODGKIN^S DISEASE
     Route: 065
  7. VINBLASTINE (MANUFACTURER UNKNOWN) [Suspect]
     Active Substance: VINBLASTINE
     Indication: HODGKIN^S DISEASE
     Route: 065
  8. IFOSFAMIDE (MANUFACTURER UNKNOWN) [Suspect]
     Active Substance: IFOSFAMIDE
     Indication: HODGKIN^S DISEASE
     Route: 065
  9. BLEOMYCIN [Suspect]
     Active Substance: BLEOMYCIN SULFATE
     Indication: HODGKIN^S DISEASE
     Route: 065
  10. DOXORUBICIN (MANUFACTURER UNKNOWN) [Suspect]
     Active Substance: DOXORUBICIN
     Indication: HODGKIN^S DISEASE
     Route: 065

REACTIONS (2)
  - Oropharyngeal squamous cell carcinoma [Recovering/Resolving]
  - Papilloma viral infection [Recovering/Resolving]
